FAERS Safety Report 13048985 (Version 1)
Quarter: 2016Q4

REPORT INFORMATION
  Report Type: Spontaneous
  Country: CA (occurrence: CA)
  Receive Date: 20161221
  Receipt Date: 20161221
  Transmission Date: 20170207
  Serious: Yes (Death)
  Sender: FDA-Public Use
  Company Number: CA-ROCHE-1869295

PATIENT

DRUGS (12)
  1. FILGRASTIM [Suspect]
     Active Substance: FILGRASTIM
     Indication: B-CELL LYMPHOMA
     Route: 065
  2. CARBOPLATIN. [Suspect]
     Active Substance: CARBOPLATIN
     Indication: B-CELL LYMPHOMA
     Route: 042
  3. PREDNISONE. [Suspect]
     Active Substance: PREDNISONE
     Indication: B-CELL LYMPHOMA
     Route: 065
  4. RITUXIMAB [Suspect]
     Active Substance: RITUXIMAB
     Indication: B-CELL LYMPHOMA
     Route: 065
  5. BUSULFEX [Suspect]
     Active Substance: BUSULFAN
     Indication: B-CELL LYMPHOMA
     Route: 042
  6. ZEVALIN [Suspect]
     Active Substance: IBRITUMOMAB TIUXETAN
     Indication: B-CELL LYMPHOMA
     Route: 065
  7. DOXORUBICIN [Suspect]
     Active Substance: DOXORUBICIN
     Indication: B-CELL LYMPHOMA
     Route: 042
  8. VINCRISTINE [Suspect]
     Active Substance: VINCRISTINE
     Indication: B-CELL LYMPHOMA
     Route: 065
  9. FLUDARABINE PHOSPHATE. [Suspect]
     Active Substance: FLUDARABINE PHOSPHATE
     Indication: B-CELL LYMPHOMA
     Route: 065
  10. PROCYTOX [Suspect]
     Active Substance: CYCLOPHOSPHAMIDE
     Indication: B-CELL LYMPHOMA
     Route: 042
  11. ETOPOSIDE. [Suspect]
     Active Substance: ETOPOSIDE
     Indication: B-CELL LYMPHOMA
     Route: 065
  12. IFEX [Suspect]
     Active Substance: IFOSFAMIDE
     Indication: B-CELL LYMPHOMA
     Route: 042

REACTIONS (2)
  - Sepsis [Fatal]
  - Meningitis tuberculous [Fatal]
